FAERS Safety Report 20943152 (Version 4)
Quarter: 2023Q2

REPORT INFORMATION
  Report Type: Report from Study
  Country: GB (occurrence: GB)
  Receive Date: 20220610
  Receipt Date: 20230613
  Transmission Date: 20230721
  Serious: Yes (Other)
  Sender: FDA-Public Use
  Company Number: GB-CELLTRION INC.-2022GB008760

PATIENT

DRUGS (25)
  1. TRASTUZUMAB [Suspect]
     Active Substance: TRASTUZUMAB
     Indication: Breast cancer
     Dosage: 441 MG, Q3WEEKS (CUMULATIVE DOSE: 1574.125 MG, DOSE FORM: SOLUTION FOR INFUSION)
     Route: 042
     Dates: start: 20180125, end: 20180222
  2. TRASTUZUMAB [Suspect]
     Active Substance: TRASTUZUMAB
     Dosage: 441 MG, Q3WEEKS (CUMULATIVE DOSE: 1574.125 MG, DOSE FORM: SOLUTION FOR INFUSION)
     Route: 042
     Dates: start: 20180125, end: 20180222
  3. TRASTUZUMAB [Suspect]
     Active Substance: TRASTUZUMAB
     Dosage: 336 MG, Q3WEEKS (CUMULATIVE DOSE: 639.3333 MG, DOSE FORM: SOLUTION FOR INFUSION)
     Route: 042
     Dates: start: 20180301
  4. TRASTUZUMAB [Suspect]
     Active Substance: TRASTUZUMAB
     Dosage: 336 MG, Q3WEEKS (CUMULATIVE DOSE: 639.3333 MG, DOSE FORM: SOLUTION FOR INFUSION)
     Route: 042
     Dates: start: 20180301
  5. DOCETAXEL [Suspect]
     Active Substance: DOCETAXEL
     Indication: Breast cancer
     Dosage: 68 MG, Q3WEEKS (CUMULATIVE DOSE: 74.47619 MG)
     Route: 042
     Dates: start: 20180503, end: 20180503
  6. DOCETAXEL [Suspect]
     Active Substance: DOCETAXEL
     Dosage: 68 MG, Q3WEEKS (CUMULATIVE DOSE: 74.47619 MG)
     Route: 042
     Dates: start: 20180503, end: 20180503
  7. DOCETAXEL [Suspect]
     Active Substance: DOCETAXEL
     Dosage: 68 MG, Q3WEEKS (CUMULATIVE DOSE: 74.47619 MG)
     Route: 042
     Dates: start: 20180503, end: 20180503
  8. DOCETAXEL [Suspect]
     Active Substance: DOCETAXEL
     Dosage: 80 MG
     Route: 042
     Dates: start: 20180301, end: 20180412
  9. DOCETAXEL [Suspect]
     Active Substance: DOCETAXEL
     Dosage: 80 MG
     Route: 042
     Dates: start: 20180301, end: 20180412
  10. DOCETAXEL [Suspect]
     Active Substance: DOCETAXEL
     Dosage: 80 MG
     Route: 042
     Dates: start: 20180301, end: 20180412
  11. DOCETAXEL [Suspect]
     Active Substance: DOCETAXEL
     Dosage: 148 MG, Q3WEEKS (CUMULATIVE DOSE:  528.2778 MG)
     Route: 042
     Dates: start: 20180125, end: 20180215
  12. DOCETAXEL [Suspect]
     Active Substance: DOCETAXEL
     Dosage: 148 MG, Q3WEEKS (CUMULATIVE DOSE:  528.2778 MG)
     Route: 042
     Dates: start: 20180125, end: 20180215
  13. DOCETAXEL [Suspect]
     Active Substance: DOCETAXEL
     Dosage: 148 MG, Q3WEEKS (CUMULATIVE DOSE:  528.2778 MG)
     Route: 042
     Dates: start: 20180125, end: 20180215
  14. PERTUZUMAB [Suspect]
     Active Substance: PERTUZUMAB
     Indication: Breast cancer
     Dosage: 420 MG, Q3WEEKS (CUMULATIVE DOSE: 799.1667 MG,DOSE FORM: SOLUTION FOR INFUSION)
     Route: 042
     Dates: start: 20180301
  15. PERTUZUMAB [Suspect]
     Active Substance: PERTUZUMAB
     Dosage: 420 MG, Q3WEEKS (CUMULATIVE DOSE: 799.1667 MG,DOSE FORM: SOLUTION FOR INFUSION)
     Route: 042
     Dates: start: 20180301
  16. PERTUZUMAB [Suspect]
     Active Substance: PERTUZUMAB
     Dosage: 840 MG, Q3WEEKS (CUMULATIVE DOSE: 2998.3333 MG, DOSE FORM: SOLUTION FOR INFUSION)
     Route: 042
     Dates: start: 20180125, end: 20180222
  17. PERTUZUMAB [Suspect]
     Active Substance: PERTUZUMAB
     Dosage: 840 MG, Q3WEEKS (CUMULATIVE DOSE: 2998.3333 MG, DOSE FORM: SOLUTION FOR INFUSION)
     Route: 042
     Dates: start: 20180125, end: 20180222
  18. ADO-TRASTUZUMAB EMTANSINE [Suspect]
     Active Substance: ADO-TRASTUZUMAB EMTANSINE
     Indication: Breast cancer
     Dosage: 200 MG, Q3WEEKS (CUMULATIVE DOSE: 419.0476 MG, DOSE FORM: SOLUTION FOR INFUSION)
     Route: 042
     Dates: start: 20180524, end: 20190221
  19. ADO-TRASTUZUMAB EMTANSINE [Suspect]
     Active Substance: ADO-TRASTUZUMAB EMTANSINE
     Dosage: 200 MG, Q3WEEKS (CUMULATIVE DOSE: 419.0476 MG, DOSE FORM: SOLUTION FOR INFUSION)
     Route: 042
     Dates: start: 20180524, end: 20190221
  20. ADO-TRASTUZUMAB EMTANSINE [Suspect]
     Active Substance: ADO-TRASTUZUMAB EMTANSINE
     Dosage: 200 MG, Q3WEEKS (CUMULATIVE DOSE: 3419.0476 MG, DOSE FORM: SOLUTION FOR INFUSION)
     Route: 042
     Dates: start: 20190404
  21. ADO-TRASTUZUMAB EMTANSINE [Suspect]
     Active Substance: ADO-TRASTUZUMAB EMTANSINE
     Dosage: 200 MG, Q3WEEKS (CUMULATIVE DOSE: 3419.0476 MG, DOSE FORM: SOLUTION FOR INFUSION)
     Route: 042
     Dates: start: 20190404
  22. PFIZER-BIONTECH COVID-19 VACCINE [Concomitant]
     Active Substance: TOZINAMERAN
  23. RISEDRONATE SODIUM [Concomitant]
     Active Substance: RISEDRONATE SODIUM
     Dosage: 35 MG, 1/WEEK (DOSE FORM: 169)
     Route: 048
     Dates: start: 201511
  24. ZOMETA [Concomitant]
     Active Substance: ZOLEDRONIC ACID
     Dosage: 4 MG, Q6MONTHS (CUMULATIVE DOSE: 0.88796294 MG)
     Route: 042
     Dates: start: 20180301
  25. ZOMETA [Concomitant]
     Active Substance: ZOLEDRONIC ACID
     Dosage: 4 MG, Q6WEEKS (CUMULATIVE DOSE: 22.0 MG)
     Route: 042
     Dates: start: 20170828, end: 20171121

REACTIONS (3)
  - Neuropathy peripheral [Recovered/Resolved]
  - Neuropathy peripheral [Recovering/Resolving]
  - Neutrophil count decreased [Recovered/Resolved]

NARRATIVE: CASE EVENT DATE: 20180410
